FAERS Safety Report 8115686-8 (Version None)
Quarter: 2012Q1

REPORT INFORMATION
  Report Type: 
  Country: None (occurrence: None)
  Receive Date: 20120206
  Receipt Date: 20120202
  Transmission Date: 20120608
  Serious: Yes (Death)
  Sender: FDA-Public Use
  Company Number: AU-B.I. PHARMACEUTICALS,INC./RIDGEFIELD-2012-AU-00194AU

PATIENT
  Sex: Male

DRUGS (11)
  1. LANOXIN [Concomitant]
  2. CALTRATE PLUS D [Concomitant]
  3. PRADAXA [Suspect]
     Indication: ATRIAL FIBRILLATION
  4. UREMIDE [Concomitant]
  5. PRADAXA [Suspect]
     Indication: CEREBROVASCULAR ACCIDENT PROPHYLAXIS
     Dosage: 220 MG
     Dates: start: 20111111
  6. COLGOUT [Concomitant]
  7. ACETAMINOPHEN [Concomitant]
  8. PROGOUT [Concomitant]
  9. ATACAND [Concomitant]
  10. OSTEVIT D [Concomitant]
  11. SPIRIVA [Concomitant]

REACTIONS (1)
  - DEATH [None]
